FAERS Safety Report 8834393 (Version 2)
Quarter: 2013Q1

REPORT INFORMATION
  Report Type: Spontaneous
  Country: GB (occurrence: GB)
  Receive Date: 20121010
  Receipt Date: 20130208
  Transmission Date: 20140127
  Serious: Yes (Life-Threatening, Other)
  Sender: FDA-Public Use
  Company Number: GB-JNJFOC-20121004857

PATIENT
  Age: 21 Year
  Sex: Male
  Weight: 67.8 kg

DRUGS (2)
  1. IBUPROFEN [Suspect]
     Indication: PAIN IN EXTREMITY
     Route: 048
     Dates: start: 20120420, end: 20120830
  2. PARACETAMOL [Concomitant]
     Indication: PRODUCT USED FOR UNKNOWN INDICATION
     Route: 065

REACTIONS (8)
  - Aplastic anaemia [Unknown]
  - Bone marrow failure [Unknown]
  - Pyrexia [Unknown]
  - Haemoglobin decreased [Unknown]
  - Platelet count decreased [Unknown]
  - Mouth ulceration [Unknown]
  - Neutrophil count decreased [Unknown]
  - Reticulocyte count decreased [Unknown]
